FAERS Safety Report 13894558 (Version 1)
Quarter: 2017Q3

REPORT INFORMATION
  Report Type: Spontaneous
  Country: US (occurrence: US)
  Receive Date: 20170817
  Receipt Date: 20170817
  Transmission Date: 20171127
  Serious: Yes (Other)
  Sender: FDA-Public Use
  Company Number: None

PATIENT
  Age: 39 Year
  Sex: Female
  Weight: 81 kg

DRUGS (1)
  1. GABAPENTIN. [Suspect]
     Active Substance: GABAPENTIN
     Indication: SCIATICA
     Dosage: ?          QUANTITY:1 TABLET 3 TIMES A DAY ORAL?
     Route: 048

REACTIONS (2)
  - Depressed mood [None]
  - Alopecia [None]

NARRATIVE: CASE EVENT DATE: 20161001
